FAERS Safety Report 6719150-X (Version None)
Quarter: 2010Q2

REPORT INFORMATION
  Report Type: 
  Country: None (occurrence: None)
  Receive Date: 20100511
  Receipt Date: 20100505
  Transmission Date: 20101027
  Serious: Yes (Death, Hospitalization)
  Sender: FDA-Public Use
  Company Number: DE-BAYER-201019138GPV

PATIENT
  Age: 65 Year
  Sex: Male
  Weight: 83 kg

DRUGS (15)
  1. SORAFENIB [Suspect]
     Indication: HEPATIC NEOPLASM MALIGNANT
     Dosage: TOTAL DAILY DOSE: 800 MG
     Route: 048
     Dates: start: 20100301, end: 20100311
  2. PLACEBO [Suspect]
     Indication: HEPATIC NEOPLASM MALIGNANT
     Dosage: TOTAL DAILY DOSE: 150 MG
     Route: 048
     Dates: start: 20100301, end: 20100311
  3. METOPROLOL RETARD [Concomitant]
     Indication: HYPERTENSION
     Dates: start: 20040101, end: 20100325
  4. GLIBENHEXAL [Concomitant]
     Indication: TYPE 2 DIABETES MELLITUS
     Dates: start: 19950101, end: 20100310
  5. GLIBENHEXAL [Concomitant]
     Dates: start: 20100311, end: 20100325
  6. SPIRONOLACTONE [Concomitant]
     Indication: ASCITES
     Dates: start: 20091218, end: 20100310
  7. TORSEMIDE [Concomitant]
     Indication: ASCITES
     Dates: start: 20091218, end: 20100310
  8. RANIDURA [Concomitant]
     Indication: GASTRITIS
     Dates: start: 20091218, end: 20100310
  9. UNIZINK [Concomitant]
     Indication: PREMEDICATION
     Dosage: 100
     Dates: start: 20090101, end: 20100325
  10. CLAFORAN [Concomitant]
     Indication: ABDOMINAL INFECTION
     Dates: start: 20100311, end: 20100319
  11. CLONT [Concomitant]
     Indication: ABDOMINAL INFECTION
     Dates: start: 20100311, end: 20100319
  12. BUSCOPAN [Concomitant]
     Indication: ABDOMINAL PAIN
     Dates: start: 20100311, end: 20100319
  13. TEMGESIC [Concomitant]
     Indication: ABDOMINAL PAIN
     Dates: start: 20100311, end: 20100319
  14. MCP [Concomitant]
     Indication: ABDOMINAL PAIN
     Dates: start: 20100311, end: 20100319
  15. MOVICOL [Concomitant]
     Indication: ABDOMINAL PAIN
     Dates: start: 20100311, end: 20100319

REACTIONS (3)
  - ASCITES [None]
  - HEPATIC NEOPLASM MALIGNANT [None]
  - PORTAL VEIN THROMBOSIS [None]
